FAERS Safety Report 5045119-X (Version None)
Quarter: 2006Q3

REPORT INFORMATION
  Report Type: 
  Country: None (occurrence: None)
  Receive Date: 20060707
  Receipt Date: 20060517
  Transmission Date: 20061208
  Serious: Yes (Death, Hospitalization)
  Sender: FDA-Public Use
  Company Number: JP-SANOFI-SYNTHELABO-F01200601233

PATIENT
  Sex: Male
  Weight: 48 kg

DRUGS (3)
  1. CALCIUM LEVOFOLINATE [Suspect]
     Dosage: 100 MG/BODY=68 MG/M2
     Route: 042
     Dates: start: 20051013, end: 20051014
  2. FLUOROURACIL [Suspect]
     Dosage: 500 MG/BODY=340.1 MG/M2 IN BOLUS THEN 750 MG/BODY=510.2 MG/M2 AS INFUSION
     Route: 042
     Dates: start: 20051013, end: 20051014
  3. OXALIPLATIN [Suspect]
     Indication: COLON CANCER
     Dosage: 100 MG/BODY=68 MG/M2
     Route: 042
     Dates: start: 20051013, end: 20051013

REACTIONS (17)
  - ALANINE AMINOTRANSFERASE INCREASED [None]
  - ANGIOPATHY [None]
  - ASPARTATE AMINOTRANSFERASE INCREASED [None]
  - BLOOD PRESSURE DECREASED [None]
  - DIARRHOEA [None]
  - HAEMOGLOBIN DECREASED [None]
  - HAEMORRHAGE [None]
  - HEPATIC FAILURE [None]
  - LARGE INTESTINAL ULCER [None]
  - LARGE INTESTINE PERFORATION [None]
  - MELAENA [None]
  - METASTASES TO LYMPH NODES [None]
  - NECROSIS [None]
  - RENAL IMPAIRMENT [None]
  - SHOCK [None]
  - THROMBOCYTOPENIA [None]
  - VASCULAR PSEUDOANEURYSM [None]
